FAERS Safety Report 9850885 (Version 2)
Quarter: 2014Q1

REPORT INFORMATION
  Report Type: Spontaneous
  Country: JP (occurrence: JP)
  Receive Date: 20140128
  Receipt Date: 20140128
  Transmission Date: 20141002
  Serious: Yes (Hospitalization, Other)
  Sender: FDA-Public Use
  Company Number: JP-PFIZER INC-2014013024

PATIENT
  Age: 55 Year
  Sex: Female
  Weight: 47.5 kg

DRUGS (10)
  1. RIFAMPICIN [Suspect]
     Indication: MENINGITIS TUBERCULOUS
     Dosage: 600 MG, DAILY
  2. ISONIAZID [Suspect]
     Indication: MENINGITIS TUBERCULOUS
     Dosage: 500 MG, DAILY
     Route: 037
  3. ETHAMBUTOL [Suspect]
     Indication: MENINGITIS TUBERCULOUS
     Dosage: 750 MG, DAILY
  4. PYRAZINAMIDE [Suspect]
     Indication: MENINGITIS TUBERCULOUS
     Dosage: 1.5 G, DAILY
  5. PREDNISOLONE [Concomitant]
     Indication: STILL^S DISEASE ADULT ONSET
     Dosage: 40 MG, DAILY
     Route: 048
  6. PREDNISOLONE [Concomitant]
     Dosage: 20 MG, DAILY
     Route: 048
  7. MEROPENEM [Concomitant]
     Indication: MENINGITIS BACTERIAL
     Dosage: 6 G, DAILY
  8. MEROPENEM [Concomitant]
     Indication: HERPES SIMPLEX MENINGITIS
  9. ACYCLOVIR [Concomitant]
     Indication: MENINGITIS BACTERIAL
     Dosage: 1.5 G, DAILY
  10. ACYCLOVIR [Concomitant]
     Indication: HERPES SIMPLEX MENINGITIS

REACTIONS (2)
  - Intracranial pressure increased [Recovered/Resolved]
  - Drug ineffective [Unknown]
